FAERS Safety Report 12301531 (Version 1)
Quarter: 2016Q2

REPORT INFORMATION
  Report Type: Spontaneous
  Country: FR (occurrence: FR)
  Receive Date: 20160425
  Receipt Date: 20160425
  Transmission Date: 20160815
  Serious: Yes (Hospitalization, Disabling, Congenital Anomaly, Other)
  Sender: FDA-Public Use
  Company Number: FR-ABBVIE-16P-056-1613195-00

PATIENT
  Sex: Female

DRUGS (1)
  1. DEPAKINE [Suspect]
     Active Substance: VALPROATE SODIUM
     Indication: MATERNAL EXPOSURE TIMING UNSPECIFIED
     Route: 064

REACTIONS (10)
  - Abnormal behaviour [Not Recovered/Not Resolved]
  - Deafness [Unknown]
  - Educational problem [Not Recovered/Not Resolved]
  - Speech disorder developmental [Unknown]
  - Small for dates baby [Unknown]
  - Motor developmental delay [Unknown]
  - Foetal exposure during pregnancy [Unknown]
  - Selective eating disorder [Unknown]
  - Palatal disorder [Unknown]
  - Autism spectrum disorder [Not Recovered/Not Resolved]

NARRATIVE: CASE EVENT DATE: 2000
